FAERS Safety Report 24879268 (Version 1)
Quarter: 2025Q1

REPORT INFORMATION
  Report Type: Spontaneous
  Country: US (occurrence: US)
  Receive Date: 20250123
  Receipt Date: 20250123
  Transmission Date: 20250409
  Serious: No
  Sender: CATALYST PHARMA
  Company Number: US-CATALYST PHARMACEUTICALS, INC-US-CATA-24-01030

PATIENT
  Sex: Female
  Weight: 63.039 kg

DRUGS (3)
  1. FIRDAPSE [Suspect]
     Active Substance: AMIFAMPRIDINE PHOSPHATE
     Indication: Congenital myasthenic syndrome
     Dosage: 5 MG THREE TIMES DAILY FOR SEVEN DAYS, THEN INCREASE BY 5 MG EVERY SEVEN DAYS, UNTIL A MAX DOSE OF 1
     Route: 048
  2. LIALDA [Concomitant]
     Active Substance: MESALAMINE
     Indication: Crohn^s disease
     Dosage: 1.2 G DAILY
     Route: 065
  3. PYRIDOSTIGMINE [Concomitant]
     Active Substance: PYRIDOSTIGMINE
     Indication: Muscular weakness
     Dosage: 60 MG DAILY
     Route: 065

REACTIONS (1)
  - Off label use [Unknown]
